FAERS Safety Report 6185331-X (Version None)
Quarter: 2009Q2

REPORT INFORMATION
  Report Type: 
  Country: None (occurrence: None)
  Receive Date: 20090511
  Receipt Date: 20090427
  Transmission Date: 20091009
  Serious: Yes (Hospitalization)
  Sender: FDA-Public Use
  Company Number: US-TYCO HEALTHCARE/MALLINCKRODT-T200900935

PATIENT
  Age: 18 Year
  Sex: Male

DRUGS (6)
  1. ACETAMINOPHEN AND HYDROCODONE BITARTRATE [Suspect]
     Indication: PAIN
  2. HYDROXYCUT [Suspect]
     Indication: SUPPLEMENTATION THERAPY
     Dosage: 1 CAPLET QID (1 IN AM, 1 AT MIDDAY, 2 IN PM)
     Route: 048
  3. NAPROXEN SODIUM [Suspect]
     Indication: PAIN
     Dosage: 220 MG, PRN
     Route: 048
  4. ADDERALL 10 [Suspect]
     Indication: DISTURBANCE IN ATTENTION
     Dosage: 15 MG, SINGLE
     Route: 048
  5. CYCLOBENZAPRINE [Suspect]
     Indication: PAIN
  6. ALCOHOL [Suspect]
     Indication: ALCOHOL USE
     Route: 048

REACTIONS (1)
  - RHABDOMYOLYSIS [None]
